FAERS Safety Report 15076450 (Version 1)
Quarter: 2018Q2

REPORT INFORMATION
  Report Type: Spontaneous
  Country: US (occurrence: US)
  Receive Date: 20180627
  Receipt Date: 20180627
  Transmission Date: 20180711
  Serious: No
  Sender: FDA-Public Use
  Company Number: US-APOTEX-2018AP015240

PATIENT
  Age: 33 Year
  Sex: Male

DRUGS (5)
  1. RAMELTEON [Suspect]
     Active Substance: RAMELTEON
     Indication: CIRCADIAN RHYTHM SLEEP DISORDER
     Dosage: UNK
     Route: 065
  2. TRAZODONE [Suspect]
     Active Substance: TRAZODONE HYDROCHLORIDE
     Indication: CIRCADIAN RHYTHM SLEEP DISORDER
     Dosage: UNK
     Route: 065
  3. DEXTROAMPHETAMINE                  /00016601/ [Suspect]
     Active Substance: DEXTROAMPHETAMINE
     Indication: CIRCADIAN RHYTHM SLEEP DISORDER
     Dosage: UNK
     Route: 065
  4. SERTRALINE [Suspect]
     Active Substance: SERTRALINE HYDROCHLORIDE
     Indication: CIRCADIAN RHYTHM SLEEP DISORDER
     Dosage: UNK
     Route: 065
  5. ARIPIPRAZOLE. [Suspect]
     Active Substance: ARIPIPRAZOLE
     Indication: CIRCADIAN RHYTHM SLEEP DISORDER
     Dosage: UNK
     Route: 065

REACTIONS (2)
  - Adverse event [Unknown]
  - Drug ineffective [Unknown]
